FAERS Safety Report 12679582 (Version 7)
Quarter: 2018Q3

REPORT INFORMATION
  Report Type: Spontaneous
  Country: US (occurrence: US)
  Receive Date: 20160824
  Receipt Date: 20180816
  Transmission Date: 20181010
  Serious: No
  Sender: FDA-Public Use
  Company Number: US-PFIZER INC-2016361534

PATIENT
  Age: 52 Year
  Sex: Male
  Weight: 136.5 kg

DRUGS (25)
  1. KLONOPIN [Concomitant]
     Active Substance: CLONAZEPAM
     Dosage: 0.5 MG, AS NEEDED (THREE TIMES DAILY)
     Route: 048
  2. LAMICTAL [Concomitant]
     Active Substance: LAMOTRIGINE
     Dosage: 200 MG, DAILY (HALF TAB IN AM AND WHOLE TAB AT BEDTIME)
     Route: 048
  3. ACTOS [Concomitant]
     Active Substance: PIOGLITAZONE HYDROCHLORIDE
     Dosage: 30 MG, DAILY
     Route: 048
  4. NORCO [Concomitant]
     Active Substance: ACETAMINOPHEN\HYDROCODONE BITARTRATE
     Indication: PAIN
     Dosage: 1 DF (HYDROCODONE?5MG, ACETAMINOPHEN?325MG), AS NEEDED (EVERY 8 HOURS)
     Route: 048
  5. ZOFRAN [Concomitant]
     Active Substance: ONDANSETRON HYDROCHLORIDE
     Indication: NAUSEA
     Dosage: 4 MG (1 TABLET), AS NEEDED (EVERY 8 HOURS)
     Route: 048
  6. LYRICA [Suspect]
     Active Substance: PREGABALIN
     Indication: NEUROPATHY PERIPHERAL
     Dosage: UNK, 2X/DAY (150)
  7. SAPHRIS, BLACK CHERRY [Concomitant]
     Dosage: 10 MG, 1X/DAY (AT BEDTIME)
     Route: 060
  8. LEXAPRO [Concomitant]
     Active Substance: ESCITALOPRAM OXALATE
     Dosage: 20 MG, DAILY
     Route: 048
  9. AMBIEN [Concomitant]
     Active Substance: ZOLPIDEM TARTRATE
     Indication: SLEEP DISORDER
     Dosage: 10 MG, AS NEEDED (NIGHTLY)
     Route: 048
  10. LYRICA [Suspect]
     Active Substance: PREGABALIN
     Dosage: 1200 MG, DAILY, [300MG CAPSULE / QUANTITY = 360 / DAY SUPPLY = 90]
  11. LYRICA [Suspect]
     Active Substance: PREGABALIN
     Dosage: 3600 MG, DAILY(300 MG CAPSULE / QTY 360 / DAYS SUPPLY 30)
  12. AMITRIPTYLINE [Concomitant]
     Active Substance: AMITRIPTYLINE
     Dosage: UNK
  13. LYRICA [Suspect]
     Active Substance: PREGABALIN
     Indication: TYPE 2 DIABETES MELLITUS
     Dosage: 300 MG, 2X/DAY (300)
     Route: 048
     Dates: start: 20160208, end: 20160715
  14. ANAPROX [Concomitant]
     Active Substance: NAPROXEN SODIUM
     Dosage: 550 MG (1 TABLET), 2X/DAY (WITH MEALS)
     Route: 048
  15. FENOFIBRATE. [Concomitant]
     Active Substance: FENOFIBRATE
     Dosage: 160 MG, DAILY
     Route: 048
  16. LYRICA [Suspect]
     Active Substance: PREGABALIN
     Dosage: 300 MG, 4X/DAY (1200MG/DAY)
     Route: 048
     Dates: start: 20170912
  17. DEPLIN [Concomitant]
     Active Substance: LEVOMEFOLATE CALCIUM
     Dosage: 7.5 MG, UNK
     Route: 048
  18. ANAPROX DS [Concomitant]
     Active Substance: NAPROXEN SODIUM
     Dosage: 550 MG (1 TABLET), 2X/DAY (WITH MEALS)
     Route: 048
  19. NEURONTIN [Concomitant]
     Active Substance: GABAPENTIN
     Dosage: 400 MG, 3X/DAY
     Route: 048
  20. LYRICA [Suspect]
     Active Substance: PREGABALIN
     Indication: DIABETIC NEUROPATHY
     Dosage: 300 MG, 4X/DAY (4 (FOUR) TIMES DAILY)
     Route: 048
     Dates: start: 20170228
  21. GLUCOPHAGE [Concomitant]
     Active Substance: METFORMIN HYDROCHLORIDE
     Dosage: 1000 MG (1 TABLET), 2X/DAY (WITH MEALS)
     Route: 048
  22. GABAPENTIN. [Concomitant]
     Active Substance: GABAPENTIN
     Dosage: UNK
  23. LYRICA [Suspect]
     Active Substance: PREGABALIN
     Indication: AUTONOMIC NEUROPATHY
     Dosage: 300 MG (1 CAPSULE), 3X/DAY (300)
     Route: 048
  24. FLOMAX [Concomitant]
     Active Substance: TAMSULOSIN HYDROCHLORIDE
     Dosage: 0.4 MG (1 CAPSULE), 1X/DAY (NIGHTLY)
     Route: 048
  25. DULOXETINE. [Concomitant]
     Active Substance: DULOXETINE
     Dosage: UNK

REACTIONS (4)
  - Drug ineffective [Recovered/Resolved]
  - Feeling abnormal [Unknown]
  - Prescribed overdose [Unknown]
  - Somnolence [Recovered/Resolved]

NARRATIVE: CASE EVENT DATE: 201606
